FAERS Safety Report 25068167 (Version 4)
Quarter: 2025Q2

REPORT INFORMATION
  Report Type: Spontaneous
  Country: US (occurrence: US)
  Receive Date: 20250312
  Receipt Date: 20250514
  Transmission Date: 20250717
  Serious: No
  Sender: PFIZER
  Company Number: US-PFIZER INC-202201377400

PATIENT
  Age: 68 Year
  Sex: Female
  Weight: 109.77 kg

DRUGS (4)
  1. BOSULIF [Suspect]
     Active Substance: BOSUTINIB MONOHYDRATE
     Indication: Leukaemia
     Dosage: 400 MG, 1X/DAY (ONE TABLET OF 400MG DAILY)
     Route: 048
     Dates: start: 20210116
  2. BOSULIF [Suspect]
     Active Substance: BOSUTINIB MONOHYDRATE
     Indication: Acute leukaemia in remission
  3. BOSULIF [Suspect]
     Active Substance: BOSUTINIB MONOHYDRATE
     Indication: Acute leukaemia
  4. COLESTIPOL [Concomitant]
     Active Substance: COLESTIPOL
     Indication: Diarrhoea
     Dosage: 1 G, 3X/DAY ( TAKE 1 TABLET, 3 TIMES DAILY)

REACTIONS (4)
  - Mean cell haemoglobin concentration decreased [Unknown]
  - Blood calcium decreased [Unknown]
  - Blood creatinine increased [Unknown]
  - Off label use [Unknown]

NARRATIVE: CASE EVENT DATE: 20210116
